FAERS Safety Report 17135280 (Version 1)
Quarter: 2019Q4

REPORT INFORMATION
  Report Type: Report from Study
  Country: ES (occurrence: ES)
  Receive Date: 20191210
  Receipt Date: 20191210
  Transmission Date: 20200122
  Serious: Yes (Hospitalization)
  Sender: FDA-Public Use
  Company Number: ES-MYLANLABS-2019M1120267

PATIENT
  Age: 93 Year
  Sex: Female

DRUGS (6)
  1. PANTOPRAZOLE [Suspect]
     Active Substance: PANTOPRAZOLE
     Indication: PROPHYLAXIS
     Dosage: 20 MILLIGRAM, QD
     Route: 048
     Dates: start: 200807
  2. FUROSEMIDA                         /00032601/ [Concomitant]
     Active Substance: FUROSEMIDE
     Indication: CARDIAC FAILURE CONGESTIVE
     Dosage: 40 MILLIGRAM, QD
     Route: 048
     Dates: start: 200808
  3. LEVOFLOXACIN. [Interacting]
     Active Substance: LEVOFLOXACIN
     Indication: NASOPHARYNGITIS
     Dosage: 500 MILLIGRAM, QD
     Route: 048
     Dates: start: 20190415, end: 20190418
  4. RISPERIDONA [Concomitant]
     Active Substance: RISPERIDONE
     Indication: DEMENTIA
     Dosage: 1 MILLIGRAM, QD
     Route: 048
     Dates: start: 201810
  5. CLOPIDOGREL [Concomitant]
     Active Substance: CLOPIDOGREL BISULFATE
     Indication: AORTIC STENOSIS
     Dosage: 75 MILLIGRAM, QD
     Route: 048
     Dates: start: 201010
  6. PAROXETINA                         /00830801/ [Concomitant]
     Active Substance: PAROXETINE
     Indication: DEPRESSION
     Dosage: 20 MILLIGRAM, QD
     Route: 048
     Dates: start: 200910

REACTIONS (2)
  - Clostridium difficile colitis [Recovering/Resolving]
  - Drug interaction [Unknown]

NARRATIVE: CASE EVENT DATE: 20190422
